FAERS Safety Report 19279478 (Version 3)
Quarter: 2021Q3

REPORT INFORMATION
  Report Type: Spontaneous
  Country: DE (occurrence: DE)
  Receive Date: 20210520
  Receipt Date: 20210708
  Transmission Date: 20211014
  Serious: Yes (Death, Other)
  Sender: FDA-Public Use
  Company Number: DE-MYLANLABS-2021M1029164

PATIENT
  Age: 71 Year
  Sex: Male

DRUGS (16)
  1. PREDNISOLONE. [Suspect]
     Active Substance: PREDNISOLONE
     Indication: CENTRAL NERVOUS SYSTEM LYMPHOMA
     Dosage: 2.5 MG, CYCLIC (INTRAVENTRICULAR, DAY 1, 2, 3, 4)
     Route: 020
  2. CYTARABINE. [Suspect]
     Active Substance: CYTARABINE
     Dosage: 30 MG, CYCLIC (INTRAVENTRICULAR)
     Route: 020
  3. VINCRISTINE SULFATE HOSPIRA [Suspect]
     Active Substance: VINCRISTINE SULFATE
     Dosage: 2 MILLIGRAM
     Route: 042
  4. VINDESINE [Suspect]
     Active Substance: VINDESINE
     Indication: CENTRAL NERVOUS SYSTEM LYMPHOMA
     Dosage: 5 MG, CYCLIC (DAY 1)
     Route: 042
  5. METHOTREXATE. [Suspect]
     Active Substance: METHOTREXATE
     Indication: CENTRAL NERVOUS SYSTEM LYMPHOMA
     Dosage: 3 MG (INTRAVENTRICULAR)
     Route: 020
  6. CYTARABINE. [Suspect]
     Active Substance: CYTARABINE
     Dosage: 3 MILLIGRAM, CYCLE, CYCLE C, DAY 1 AND 2
     Route: 042
  7. METHOTREXATE. [Suspect]
     Active Substance: METHOTREXATE
     Dosage: 5 G MTX/M2 BSA
     Route: 037
  8. DEXAMETHASONE. [Suspect]
     Active Substance: DEXAMETHASONE
     Indication: CENTRAL NERVOUS SYSTEM LYMPHOMA
     Dosage: 20 MG/M2 (DAY 1 TO 5)
     Route: 048
  9. DEXAMETHASONE. [Suspect]
     Active Substance: DEXAMETHASONE
     Dosage: 10 MG/M2 (DAY 1 TO 5)
     Route: 048
  10. PREDNISOLONE. [Suspect]
     Active Substance: PREDNISOLONE
     Dosage: 2.5 MG, CYCLIC (INTRAVENTRICULAR, DAY 3, 4, 5, 6)
     Route: 020
  11. CYTARABINE. [Suspect]
     Active Substance: CYTARABINE
     Indication: CENTRAL NERVOUS SYSTEM LYMPHOMA
     Dosage: UNK
  12. VINCRISTINE SULFATE HOSPIRA [Suspect]
     Active Substance: VINCRISTINE SULFATE
     Indication: CENTRAL NERVOUS SYSTEM LYMPHOMA
     Dosage: DAY 1, CYCLIC
     Route: 042
  13. IFOSFAMIDE. [Suspect]
     Active Substance: IFOSFAMIDE
     Indication: CENTRAL NERVOUS SYSTEM LYMPHOMA
     Dosage: 800 MG/M2, OVER 1 HR VIA INFUSION, CYCLIC (DAY 1 TO 5)
     Route: 042
  14. METHOTREXATE. [Suspect]
     Active Substance: METHOTREXATE
     Dosage: BAS CYCLE A, DAY 1, 0.5 G/M2 BSA OVER 30 MIN AND 4.5 G/M2 BSA OVER 23.5 HOURS PER INFUSION
     Route: 042
  15. CYTARABINE. [Suspect]
     Active Substance: CYTARABINE
     Dosage: 3 G ARA?C/M2 BSA/12 HR ON DAY 1 AND 2
     Route: 042
  16. MESNA. [Concomitant]
     Active Substance: MESNA
     Indication: CYSTITIS
     Dosage: UNK

REACTIONS (11)
  - Pleocytosis [Unknown]
  - Alopecia areata [Unknown]
  - Neutropenia [Unknown]
  - Multiple organ dysfunction syndrome [Fatal]
  - Bacterial sepsis [Fatal]
  - Leukopenia [Unknown]
  - Pneumonia [Fatal]
  - Infection [Unknown]
  - Thrombocytopenia [Unknown]
  - Encephalopathy [Recovered/Resolved]
  - Shunt infection [Unknown]
